FAERS Safety Report 4596123-7 (Version None)
Quarter: 2005Q1

REPORT INFORMATION
  Report Type: 
  Country: None (occurrence: None)
  Receive Date: 20050225
  Receipt Date: 20050128
  Transmission Date: 20050727
  Serious: Yes (Other)
  Sender: FDA-Public Use
  Company Number: 2005031642

PATIENT
  Age: 29 Year
  Sex: Male
  Weight: 66.2705 kg

DRUGS (10)
  1. BENADRYL [Suspect]
     Dosage: ORAL
     Route: 048
     Dates: start: 20050101
  2. SUDAFED 12 HOUR [Suspect]
     Dosage: ORAL
     Route: 048
     Dates: start: 20050101
  3. GALENIC/CHLORPHENAMINE/PARACETAMOL/PSEUDOERM (CHLORPHENAMINE, PARACETA [Suspect]
     Indication: NASOPHARYNGITIS
     Dosage: 2 PACKAGE, ORAL
     Route: 048
     Dates: start: 20050104, end: 20050104
  4. VINCENTS TABLETS (ACETYLSALICYLIC ACID, CAFFEINE, SALICYLAMIDE) [Suspect]
     Indication: SINUS HEADACHE
     Dosage: 2 PACKAGE PER DAY, ORAL
     Route: 048
     Dates: start: 20050101, end: 20050101
  5. EXCEDRIN (MIGRAINE) [Suspect]
     Dosage: ORAL
     Route: 048
     Dates: start: 20050101
  6. TYLENOL SINUS MEDICATION (PARACETAMOL, PSEUDOPHERINE HYDROCHLORIDE) [Suspect]
     Dosage: ORAL
     Route: 048
     Dates: start: 20050101
  7. ALKA-SELTZER PLUS COLD + FLU MEDICINE (CHLORPHENAMINE MALEATE, DEXTROM [Suspect]
     Dosage: ORAL
     Route: 048
     Dates: start: 20050101
  8. VICODIN [Concomitant]
  9. CARISOPRODOL [Concomitant]
  10. ALPRAZOLAM [Concomitant]

REACTIONS (10)
  - AMPHETAMINES POSITIVE [None]
  - BLOOD GLUCOSE DECREASED [None]
  - BLOOD PRESSURE DECREASED [None]
  - DIZZINESS [None]
  - DRUG ABUSER [None]
  - LOSS OF CONSCIOUSNESS [None]
  - NASOPHARYNGITIS [None]
  - NAUSEA [None]
  - SYNCOPE [None]
  - VOMITING [None]
